FAERS Safety Report 11740493 (Version 2)
Quarter: 2015Q4

REPORT INFORMATION
  Report Type: Spontaneous
  Country: US (occurrence: US)
  Receive Date: 20151110
  Receipt Date: 20151120
  Transmission Date: 20160304
  Serious: No
  Sender: FDA-Public Use
  Company Number: US-ELI_LILLY_AND_COMPANY-US201204005431

PATIENT
  Sex: Female

DRUGS (1)
  1. FORTEO [Suspect]
     Active Substance: TERIPARATIDE
     Indication: OSTEOPOROSIS
     Dosage: UNK UNK, QD

REACTIONS (10)
  - Pain [Unknown]
  - Lung disorder [Unknown]
  - Fatigue [Unknown]
  - Confusional state [Unknown]
  - Malaise [Recovered/Resolved]
  - Nasopharyngitis [Unknown]
  - Cough [Recovered/Resolved]
  - Weight increased [Unknown]
  - Pain in extremity [Unknown]
  - Arthralgia [Unknown]
